FAERS Safety Report 18049846 (Version 2)
Quarter: 2020Q3

REPORT INFORMATION
  Report Type: Spontaneous
  Country: RO (occurrence: RO)
  Receive Date: 20200721
  Receipt Date: 20200903
  Transmission Date: 20201103
  Serious: Yes (Hospitalization, Other)
  Sender: FDA-Public Use
  Company Number: RO-REGENERON PHARMACEUTICALS, INC.-2020-51180

PATIENT

DRUGS (1)
  1. EYLEA [Suspect]
     Active Substance: AFLIBERCEPT
     Indication: AGE-RELATED MACULAR DEGENERATION
     Dosage: 2 MG, ONCE, OD
     Route: 031
     Dates: start: 20200617, end: 20200617

REACTIONS (9)
  - Anterior chamber inflammation [Unknown]
  - Endophthalmitis [Recovering/Resolving]
  - Visual acuity reduced [Not Recovered/Not Resolved]
  - Anterior chamber flare [Unknown]
  - Hypopyon [Unknown]
  - Retinal haemorrhage [Recovering/Resolving]
  - Vitreous opacities [Unknown]
  - Retinal vasculitis [Recovering/Resolving]
  - Corneal oedema [Unknown]

NARRATIVE: CASE EVENT DATE: 20200620
